FAERS Safety Report 7537109-X (Version None)
Quarter: 2011Q2

REPORT INFORMATION
  Report Type: 
  Country: None (occurrence: None)
  Receive Date: 20110609
  Receipt Date: 20110530
  Transmission Date: 20111010
  Serious: Yes (Hospitalization, Other)
  Sender: FDA-Public Use
  Company Number: PHHY2011BR48024

PATIENT
  Sex: Male

DRUGS (3)
  1. ENALAPRIL MALEATE [Concomitant]
     Indication: HYPERTENSION
     Dosage: 1 DF A DAY
     Route: 048
     Dates: end: 20110314
  2. CLONIDINE HYDROCHLORIDE [Concomitant]
     Indication: HYPERTENSION
     Dosage: 1 DF A DAY
     Route: 048
     Dates: end: 20110314
  3. DIOVAN [Suspect]
     Indication: HYPERTENSION
     Dosage: 1 DF A DAY
     Route: 048
     Dates: end: 20110314

REACTIONS (4)
  - HYPERTENSION [None]
  - CORONARY ARTERY OCCLUSION [None]
  - CHEST PAIN [None]
  - CATHETERISATION CARDIAC [None]
